FAERS Safety Report 16035301 (Version 1)
Quarter: 2019Q1

REPORT INFORMATION
  Report Type: Spontaneous
  Country: US (occurrence: US)
  Receive Date: 20190305
  Receipt Date: 20190305
  Transmission Date: 20190418
  Serious: No
  Sender: FDA-Public Use
  Company Number: US-SA-2019SA058625

PATIENT
  Age: 57 Year
  Sex: Female

DRUGS (8)
  1. TRAZODONE [Concomitant]
     Active Substance: TRAZODONE HYDROCHLORIDE
  2. TRAMADOL. [Concomitant]
     Active Substance: TRAMADOL
  3. DUPIXENT [Suspect]
     Active Substance: DUPILUMAB
     Indication: DERMATITIS ATOPIC
     Dosage: 300 MG, QOW
     Route: 058
     Dates: start: 20181016
  4. AMLODIPINE [Concomitant]
     Active Substance: AMLODIPINE BESYLATE
  5. TIZANIDINE. [Concomitant]
     Active Substance: TIZANIDINE
  6. PRAVASTATIN. [Concomitant]
     Active Substance: PRAVASTATIN
  7. XARELTO [Concomitant]
     Active Substance: RIVAROXABAN
  8. CELECOXIB. [Concomitant]
     Active Substance: CELECOXIB

REACTIONS (2)
  - Product dose omission [Unknown]
  - Dermatitis [Unknown]

NARRATIVE: CASE EVENT DATE: 20190125
